FAERS Safety Report 5200877-6 (Version None)
Quarter: 2007Q1

REPORT INFORMATION
  Report Type: 
  Country: None (occurrence: None)
  Receive Date: 20070108
  Receipt Date: 20070103
  Transmission Date: 20070707
  Serious: Yes (Other)
  Sender: FDA-Public Use
  Company Number: DE-AVENTIS-200710023DE

PATIENT

DRUGS (2)
  1. CLEXANE [Suspect]
     Indication: OEDEMA PERIPHERAL
     Route: 048
  2. PENICILLIN [Concomitant]
     Indication: ERYSIPELAS
     Dosage: DOSE: NOT REPORTED

REACTIONS (1)
  - THROMBOCYTHAEMIA [None]
